FAERS Safety Report 5278850-1 (Version None)
Quarter: 2007Q1

REPORT INFORMATION
  Report Type: 
  Country: None (occurrence: None)
  Receive Date: 20070328
  Receipt Date: 20070323
  Transmission Date: 20070707
  Serious: Yes (Disabling, Other)
  Sender: FDA-Public Use
  Company Number: US-MERCK-96081972

PATIENT
  Age: 82 Year
  Sex: Female

DRUGS (4)
  1. FOSAMAX [Suspect]
     Indication: OSTEOPOROSIS POSTMENOPAUSAL
     Route: 048
     Dates: start: 19960601
  2. FOSAMAX [Suspect]
     Route: 048
  3. NIACIN [Concomitant]
     Route: 065
  4. LANOXIN [Concomitant]
     Route: 065

REACTIONS (5)
  - BALANCE DISORDER [None]
  - HUMERUS FRACTURE [None]
  - POSTNASAL DRIP [None]
  - QUADRIPLEGIA [None]
  - VOMITING [None]
